FAERS Safety Report 22289013 (Version 1)
Quarter: 2023Q2

REPORT INFORMATION
  Report Type: Spontaneous
  Country: US (occurrence: US)
  Receive Date: 20230505
  Receipt Date: 20230505
  Transmission Date: 20230721
  Serious: No
  Sender: FDA-Public Use
  Company Number: US-TAKEDA-2023TUS041712

PATIENT
  Age: 57 Year
  Sex: Male
  Weight: 109 kg

DRUGS (2)
  1. PENTASA [Suspect]
     Active Substance: MESALAMINE
     Indication: Crohn^s disease
     Dosage: 500 MILLIGRAM
     Route: 065
  2. ASACOL [Suspect]
     Active Substance: MESALAMINE
     Indication: Crohn^s disease
     Dosage: 800 MILLIGRAM
     Route: 065

REACTIONS (3)
  - Abdominal discomfort [Unknown]
  - Inability to afford medication [Unknown]
  - Insurance issue [Unknown]
